FAERS Safety Report 24231468 (Version 2)
Quarter: 2024Q3

REPORT INFORMATION
  Report Type: Spontaneous
  Country: US (occurrence: US)
  Receive Date: 20240821
  Receipt Date: 20240901
  Transmission Date: 20241017
  Serious: No
  Sender: BLUEPRINT MEDICINES
  Company Number: US-Blueprint Medicines Corporation-4504

PATIENT
  Sex: Female

DRUGS (1)
  1. AYVAKIT [Suspect]
     Active Substance: AVAPRITINIB
     Indication: Haematopoietic neoplasm
     Route: 048
     Dates: start: 20240812

REACTIONS (2)
  - Joint swelling [Unknown]
  - Vision blurred [Not Recovered/Not Resolved]
